FAERS Safety Report 24746949 (Version 1)
Quarter: 2024Q4

REPORT INFORMATION
  Report Type: Spontaneous
  Country: FR (occurrence: FR)
  Receive Date: 20241218
  Receipt Date: 20241218
  Transmission Date: 20250115
  Serious: Yes (Hospitalization)
  Sender: ORGANON
  Company Number: None

PATIENT
  Age: 46 Year
  Sex: Female

DRUGS (3)
  1. BETAMETHASONE [Suspect]
     Active Substance: BETAMETHASONE
     Indication: Chronic myeloid leukaemia
     Dosage: 3 MG/D
     Route: 048
     Dates: start: 20240917, end: 20241007
  2. DASATINIB [Suspect]
     Active Substance: DASATINIB
     Indication: Chronic myeloid leukaemia
     Dosage: 50MG/D
     Route: 048
     Dates: start: 20240917, end: 20241007
  3. LEVOTHYROXINE [Concomitant]
     Active Substance: LEVOTHYROXINE
     Dosage: UNK

REACTIONS (3)
  - Abdominal pain [Recovered/Resolved]
  - Vomiting [Recovered/Resolved]
  - Hepatic cytolysis [Recovered/Resolved]

NARRATIVE: CASE EVENT DATE: 20241007
